FAERS Safety Report 6745622-8 (Version None)
Quarter: 2010Q2

REPORT INFORMATION
  Report Type: 
  Country: None (occurrence: None)
  Receive Date: 20100528
  Receipt Date: 20100521
  Transmission Date: 20101027
  Serious: Yes (Other)
  Sender: FDA-Public Use
  Company Number: US-JNJFOC-20100509682

PATIENT
  Sex: Female
  Weight: 82.56 kg

DRUGS (12)
  1. TOPAMAX [Suspect]
     Indication: TREMOR
     Dosage: 25 MG 3 TIMES A DAY
     Route: 048
  2. TOPAMAX [Suspect]
     Indication: DRUG USE FOR UNKNOWN INDICATION
     Route: 065
  3. OXYCODONE [Concomitant]
     Indication: PAIN MANAGEMENT
     Route: 048
  4. SKELAXIN [Concomitant]
     Indication: MUSCLE RELAXANT THERAPY
     Route: 048
  5. METFORMIN HYDROCHLORIDE [Concomitant]
     Indication: BLOOD GLUCOSE FLUCTUATION
     Route: 048
  6. FERGON [Concomitant]
     Indication: BLOOD IRON DECREASED
     Route: 048
  7. ZYRTEC [Concomitant]
     Indication: MULTIPLE ALLERGIES
     Route: 048
  8. PRILOSEC [Concomitant]
     Indication: GASTRIC DISORDER
     Route: 048
  9. HYDROCHLOROTHIAZIDE [Concomitant]
     Indication: DRUG USE FOR UNKNOWN INDICATION
     Route: 048
  10. LEVOTHYROXINE SODIUM [Concomitant]
     Indication: HYPOTHYROIDISM
     Route: 048
  11. LEVOCARNITINE [Concomitant]
     Indication: MEDICAL DIET
     Route: 048
  12. CLONAZEPAM [Concomitant]
     Indication: TREMOR
     Route: 048

REACTIONS (6)
  - DRUG INEFFECTIVE [None]
  - DYSPHEMIA [None]
  - LABORATORY TEST ABNORMAL [None]
  - PRODUCT QUALITY ISSUE [None]
  - SPEECH DISORDER [None]
  - THOUGHT BLOCKING [None]
